FAERS Safety Report 18842299 (Version 1)
Quarter: 2021Q1

REPORT INFORMATION
  Report Type: Spontaneous
  Country: FR (occurrence: FR)
  Receive Date: 20210204
  Receipt Date: 20210204
  Transmission Date: 20210419
  Serious: Yes (Other)
  Sender: FDA-Public Use
  Company Number: FR-TEVA-2021-FR-1875959

PATIENT
  Sex: Female

DRUGS (1)
  1. CARBOPLATINE TEVA 10 MG/ML [Suspect]
     Active Substance: CARBOPLATIN
     Route: 065

REACTIONS (2)
  - Anaphylactic shock [Unknown]
  - Malaise [Unknown]

NARRATIVE: CASE EVENT DATE: 202101
